FAERS Safety Report 6032640-0 (Version None)
Quarter: 2009Q1

REPORT INFORMATION
  Report Type: 
  Country: None (occurrence: None)
  Receive Date: 20090109
  Receipt Date: 20081225
  Transmission Date: 20090719
  Serious: Yes (Hospitalization)
  Sender: FDA-Public Use
  Company Number: JP-AVENTIS-200813944JP

PATIENT
  Age: 76 Year
  Sex: Female
  Weight: 53.5 kg

DRUGS (5)
  1. ARAVA [Suspect]
     Indication: RHEUMATOID ARTHRITIS
     Route: 048
     Dates: start: 20031027, end: 20031029
  2. ARAVA [Suspect]
     Route: 048
     Dates: start: 20031030, end: 20081121
  3. MUCOSTA [Concomitant]
     Route: 048
  4. BONALON [Concomitant]
     Indication: OSTEOPOROSIS
     Route: 048
  5. PREDNISOLONE [Concomitant]
     Indication: RHEUMATOID ARTHRITIS
     Route: 048

REACTIONS (1)
  - LYMPHOMA [None]
